FAERS Safety Report 8133752-8 (Version None)
Quarter: 2012Q1

REPORT INFORMATION
  Report Type: 
  Country: None (occurrence: None)
  Receive Date: 20120213
  Receipt Date: 20120213
  Transmission Date: 20120608
  Serious: No
  Sender: FDA-Public Use
  Company Number: None

PATIENT
  Sex: Male
  Weight: 97.522 kg

DRUGS (2)
  1. PROTONIX [Suspect]
     Indication: HIATUS HERNIA
     Dosage: ONE 40MG
     Route: 048
     Dates: start: 19950101, end: 19990101
  2. OMEPRAZOLE [Concomitant]
     Indication: GASTROOESOPHAGEAL REFLUX DISEASE
     Dosage: ONE MG
     Route: 048
     Dates: start: 19990101, end: 20120101

REACTIONS (2)
  - DIARRHOEA [None]
  - HAEMORRHAGE [None]
